FAERS Safety Report 25068830 (Version 1)
Quarter: 2025Q1

REPORT INFORMATION
  Report Type: Spontaneous
  Country: US (occurrence: None)
  Receive Date: 20250312
  Receipt Date: 20250312
  Transmission Date: 20250409
  Serious: No
  Sender: FDA-CTU
  Company Number: None

PATIENT
  Age: 30 Year
  Sex: Female
  Weight: 99.45 kg

DRUGS (2)
  1. MOUNJARO [Suspect]
     Active Substance: TIRZEPATIDE
     Indication: Type 2 diabetes mellitus
     Route: 058
     Dates: start: 20250311
  2. methimizole [Concomitant]

REACTIONS (7)
  - Pain [None]
  - Abdominal pain [None]
  - Pain in extremity [None]
  - Chest pain [None]
  - Back pain [None]
  - Neck pain [None]
  - Facial pain [None]

NARRATIVE: CASE EVENT DATE: 20250312
